FAERS Safety Report 5657445-1 (Version None)
Quarter: 2008Q1

REPORT INFORMATION
  Report Type: 
  Country: None (occurrence: None)
  Receive Date: 20080310
  Receipt Date: 20080227
  Transmission Date: 20080703
  Serious: Yes (Hospitalization, Disabling)
  Sender: FDA-Public Use
  Company Number: US-PFIZER INC-2008017933

PATIENT
  Age: 42 Year
  Sex: Male
  Weight: 76.2 kg

DRUGS (15)
  1. SUTENT [Suspect]
     Indication: GLIOBLASTOMA
     Route: 048
  2. SUTENT [Suspect]
     Route: 048
  3. SODIUM BIPHOSPHATE [Concomitant]
     Indication: ENEMA ADMINISTRATION
     Route: 054
  4. MAALOX [Concomitant]
     Indication: ABDOMINAL DISCOMFORT
     Route: 048
  5. DULCOLAX [Concomitant]
     Route: 054
  6. OMEPRAZOLE [Concomitant]
     Route: 048
     Dates: start: 20080213
  7. COLACE [Concomitant]
     Route: 048
     Dates: start: 20080213
  8. COMPAZINE [Concomitant]
     Route: 042
  9. VITAMIN CAP [Concomitant]
     Dosage: TEXT:1 TABLETS-FREQ:DAILY
     Route: 048
     Dates: start: 20080213
  10. ACETAMINOPHEN [Concomitant]
     Route: 048
  11. PERCOCET [Concomitant]
     Dosage: TEXT:5MG/325MG-FREQ:AS NECESSARY
  12. ATENOLOL [Concomitant]
     Route: 048
     Dates: start: 20080207
  13. CITALOPRAM HYDROBROMIDE [Concomitant]
     Route: 048
     Dates: start: 20080213
  14. LEVOXYL [Concomitant]
     Route: 048
     Dates: start: 20080204
  15. GALANTAMINE [Concomitant]
     Route: 048
     Dates: start: 20080123

REACTIONS (3)
  - CEREBRAL ISCHAEMIA [None]
  - HEADACHE [None]
  - PYREXIA [None]
